FAERS Safety Report 7905037 (Version 6)
Quarter: 2014Q2

REPORT INFORMATION
  Report Type: Report from Study
  Country: US (occurrence: US)
  Receive Date: 20110419
  Receipt Date: 20140416
  Transmission Date: 20141212
  Serious: Yes (Hospitalization)
  Sender: FDA-Public Use
  Company Number: US-BRISTOL-MYERS SQUIBB COMPANY-15667652

PATIENT
  Age: 69 Year
  Sex: Male

DRUGS (21)
  1. BMS936564 [Suspect]
     Indication: ACUTE MYELOID LEUKAEMIA
     Dosage: PREVIOUS 29MAR11.21MAR-12APR2011; 01MAY2011 TO ONG
     Route: 042
     Dates: start: 20110321
  2. ETOPOSIDE [Suspect]
  3. MITOXANTRONE HCL [Suspect]
  4. CYTARABINE [Suspect]
  5. ACYCLOVIR [Concomitant]
     Dosage: 1 TAB=800MG
     Route: 048
     Dates: start: 201102
  6. CEFTAZIDIME [Concomitant]
     Dosage: IVPB
     Route: 042
  7. DAPSONE [Concomitant]
     Dosage: 2 TABS=50MG  ALSO ON 09-APR-2011
     Route: 048
     Dates: start: 20110209
  8. FLUCONAZOLE [Concomitant]
     Dosage: 1 TAB=200MG
     Route: 048
     Dates: start: 201102, end: 20110503
  9. OMEPRAZOLE [Concomitant]
     Dosage: 1 CAP=20MG?EMPTY STOMACH
     Route: 048
     Dates: start: 201102
  10. PAROXETINE [Concomitant]
     Dosage: 1 TAB=10MG
     Route: 048
     Dates: start: 201102
  11. SODIUM CHLORIDE [Concomitant]
     Dosage: DOSE:1000ML
     Route: 042
  12. SIMVASTATIN [Concomitant]
     Dosage: 1 TAB=40MG QHS
     Route: 048
     Dates: start: 201102
  13. URSODIOL [Concomitant]
     Dosage: 1 CAP (DF) =300MG
     Route: 048
     Dates: start: 20110306
  14. VANCOMYCIN [Concomitant]
     Dosage: IVPB,TWICE WEEKLY
     Route: 042
  15. MULTIVITAMIN WITH MINERALS [Concomitant]
     Dosage: 1 DF=1 TAB?NO IRON TAB
     Route: 048
  16. ERTAPENEM [Concomitant]
     Route: 042
     Dates: start: 20110416
  17. CIPROFLOXACIN [Concomitant]
     Route: 048
     Dates: start: 20110312
  18. POTASSIUM CHLORIDE [Concomitant]
  19. MAGNESIUM SULFATE [Concomitant]
     Dosage: 1000ML/DAY
  20. OXYCODONE [Concomitant]
     Route: 048
  21. TERAZOSIN HCL [Concomitant]

REACTIONS (3)
  - Febrile neutropenia [Recovered/Resolved]
  - Fall [Recovered/Resolved]
  - Mental status changes [Recovered/Resolved]
